FAERS Safety Report 8998992 (Version 2)
Quarter: 2013Q2

REPORT INFORMATION
  Report Type: Spontaneous
  Country: US (occurrence: US)
  Receive Date: 20130103
  Receipt Date: 20130617
  Transmission Date: 20140414
  Serious: No
  Sender: FDA-Public Use
  Company Number: US-PFIZER INC-2012063275

PATIENT
  Sex: Female

DRUGS (1)
  1. LYRICA [Suspect]
     Indication: FIBROMYALGIA
     Dosage: 450 MG,(150 MG IN MORNING AND 300 MG (TWO CAPSULES OF 150MG EACH) AT NIGHT), 2X/DAY
     Route: 048

REACTIONS (3)
  - Pain [Unknown]
  - Poor quality drug administered [Unknown]
  - Capsule physical issue [Unknown]
